FAERS Safety Report 4337772-0 (Version None)
Quarter: 2004Q2

REPORT INFORMATION
  Report Type: 
  Country: None (occurrence: None)
  Receive Date: 20040413
  Receipt Date: 20031208
  Transmission Date: 20050107
  Serious: Yes (Other)
  Sender: FDA-Public Use
  Company Number: PHEH2003US11219

PATIENT
  Age: 58 Year
  Sex: Female
  Weight: 59 kg

DRUGS (7)
  1. ELIDEL [Suspect]
     Indication: ECZEMA
     Dosage: UNK, QD AND BID
     Route: 061
     Dates: start: 20030801
  2. TRIAMCINOLONE [Concomitant]
  3. COZAAR [Concomitant]
  4. LIPITOR [Concomitant]
  5. SECTRAL [Concomitant]
  6. VITAMIN C [Concomitant]
  7. ASPIRIN [Concomitant]

REACTIONS (2)
  - BREAST DISCHARGE [None]
  - INTRADUCTAL PAPILLOMA OF BREAST [None]
